FAERS Safety Report 8021262-8 (Version None)
Quarter: 2011Q4

REPORT INFORMATION
  Report Type: 
  Country: None (occurrence: None)
  Receive Date: 20111230
  Receipt Date: 20111230
  Transmission Date: 20120403
  Serious: Yes (Hospitalization)
  Sender: FDA-Public Use
  Company Number: None

PATIENT
  Age: 65 Year
  Sex: Male
  Weight: 87.3 kg

DRUGS (2)
  1. MIDAZOLAM [Suspect]
     Indication: ANAESTHESIA
     Dosage: 5 MG ONCE IV
     Route: 042
     Dates: start: 20110929, end: 20110929
  2. FENTANYL [Suspect]
     Indication: ANAESTHESIA
     Dosage: 50 MCG ONCE IV
     Route: 042
     Dates: start: 20110929, end: 20110929

REACTIONS (1)
  - BRADYCARDIA [None]
